FAERS Safety Report 9842369 (Version 2)
Quarter: 2014Q1

REPORT INFORMATION
  Report Type: Report from Study
  Country: US (occurrence: US)
  Receive Date: 20140124
  Receipt Date: 20140213
  Transmission Date: 20141002
  Serious: Yes (Disabling, Other)
  Sender: FDA-Public Use
  Company Number: US-ACTELION-A-NJ2014-93704

PATIENT
  Age: 74 Year
  Sex: Female

DRUGS (2)
  1. TRACLEER [Suspect]
     Indication: PULMONARY ARTERIAL HYPERTENSION
     Dosage: UNK
     Route: 048
     Dates: start: 20120126
  2. COUMADIN [Concomitant]

REACTIONS (5)
  - Right ventricular failure [Recovering/Resolving]
  - Deep vein thrombosis [Recovering/Resolving]
  - Hernia [Recovering/Resolving]
  - Fall [Recovering/Resolving]
  - Oedema peripheral [Unknown]
